FAERS Safety Report 8814577 (Version 1)
Quarter: 2012Q4

REPORT INFORMATION
  Report Type: Spontaneous
  Country: US (occurrence: None)
  Receive Date: 20120925
  Receipt Date: 20120925
  Transmission Date: 20130627
  Serious: Yes (Other)
  Sender: FDA-Public Use
  Company Number: DSU-2012-07299

PATIENT
  Age: 63 Year
  Sex: Male

DRUGS (3)
  1. BENICAR [Suspect]
     Indication: HYPERTENSION
     Route: 048
     Dates: end: 201207
  2. ATENOLOL [Suspect]
     Route: 048
     Dates: start: 201207
  3. ATENOLOL [Suspect]
     Route: 048

REACTIONS (2)
  - Blood pressure increased [None]
  - Nephrectomy [None]
